FAERS Safety Report 6563274-7 (Version None)
Quarter: 2010Q1

REPORT INFORMATION
  Report Type: 
  Country: None (occurrence: None)
  Receive Date: 20100130
  Receipt Date: 20091201
  Transmission Date: 20100710
  Serious: No
  Sender: FDA-Public Use
  Company Number: US-ABBOTT-09P-163-0612635-00

PATIENT
  Sex: Male

DRUGS (11)
  1. HUMIRA [Suspect]
     Indication: RHEUMATOID ARTHRITIS
     Route: 058
     Dates: start: 20050101
  2. ARAVA [Suspect]
     Indication: RHEUMATOID ARTHRITIS
     Dates: start: 20080101, end: 20090101
  3. ARAVA [Suspect]
     Dates: start: 20080101, end: 20090101
  4. LIPITOR [Concomitant]
     Indication: BLOOD CHOLESTEROL INCREASED
  5. PREVACID [Concomitant]
     Indication: GASTROOESOPHAGEAL REFLUX DISEASE
  6. SINGULAIR [Concomitant]
     Indication: HYPERSENSITIVITY
  7. BACLOFEN [Concomitant]
     Indication: BACK PAIN
  8. MICARDIS [Concomitant]
     Indication: HYPERTENSION
  9. PREDNISONE [Concomitant]
     Indication: RHEUMATOID ARTHRITIS
     Dates: start: 20000101
  10. CELEBREX [Concomitant]
     Indication: BACK PAIN
  11. CELEBREX [Concomitant]
     Indication: RHEUMATOID ARTHRITIS

REACTIONS (1)
  - HEPATIC ENZYME INCREASED [None]
